FAERS Safety Report 12948015 (Version 1)
Quarter: 2016Q4

REPORT INFORMATION
  Report Type: Spontaneous
  Country: US (occurrence: US)
  Receive Date: 20161116
  Receipt Date: 20161116
  Transmission Date: 20170207
  Serious: No
  Sender: FDA-Public Use
  Company Number: US-BAYER-2016-218873

PATIENT
  Age: 44 Year
  Sex: Male

DRUGS (2)
  1. GADAVIST [Suspect]
     Active Substance: GADOBUTROL
     Indication: COMPUTERISED TOMOGRAM HEAD
     Dosage: UNK UNK, ONCE
     Dates: start: 20161112, end: 20161112
  2. GADAVIST [Suspect]
     Active Substance: GADOBUTROL
     Indication: HEADACHE

REACTIONS (1)
  - Vomiting [Recovered/Resolved]

NARRATIVE: CASE EVENT DATE: 20161112
